FAERS Safety Report 9931985 (Version 1)
Quarter: 2014Q1

REPORT INFORMATION
  Report Type: Spontaneous
  Country: US (occurrence: None)
  Receive Date: 20140226
  Receipt Date: 20140226
  Transmission Date: 20141002
  Serious: No
  Sender: FDA-Public Use
  Company Number: SYM-2013-04125

PATIENT
  Age: 69 Year
  Sex: Female

DRUGS (1)
  1. DILTIAZEM CD [Suspect]
     Indication: PRODUCT USED FOR UNKNOWN INDICATION
     Dates: start: 20130308

REACTIONS (4)
  - Palpitations [None]
  - Dizziness [None]
  - Flushing [None]
  - Product substitution issue [None]
